FAERS Safety Report 20684183 (Version 2)
Quarter: 2022Q2

REPORT INFORMATION
  Report Type: Spontaneous
  Country: JP (occurrence: JP)
  Receive Date: 20220407
  Receipt Date: 20220414
  Transmission Date: 20220721
  Serious: No
  Sender: FDA-Public Use
  Company Number: JP-ALLERGAN-2211279US

PATIENT
  Sex: Female

DRUGS (1)
  1. ASENAPINE MALEATE [Suspect]
     Active Substance: ASENAPINE MALEATE
     Indication: Dementia Alzheimer^s type
     Dosage: 5 MG
     Route: 060

REACTIONS (1)
  - Off label use [Unknown]
